FAERS Safety Report 7283694-5 (Version None)
Quarter: 2011Q1

REPORT INFORMATION
  Report Type: 
  Country: None (occurrence: None)
  Receive Date: 20110204
  Receipt Date: 20110204
  Transmission Date: 20110831
  Serious: Yes (Life-Threatening)
  Sender: FDA-Public Use
  Company Number: None

PATIENT
  Age: 58 Year
  Sex: Female
  Weight: 81.1939 kg

DRUGS (2)
  1. PRAVASTATIN [Suspect]
     Indication: BLOOD TRIGLYCERIDES INCREASED
     Dosage: 20MG 1 TABLET BEDTIME
     Dates: start: 20101206, end: 20110102
  2. SIMVASTATIN [Suspect]
     Indication: BLOOD CHOLESTEROL INCREASED
     Dosage: 40MG 1 TABLET BEDTIME
     Dates: start: 20100204, end: 20100506

REACTIONS (5)
  - TONGUE DISORDER [None]
  - DYSPHONIA [None]
  - BLOOD PRESSURE ABNORMAL [None]
  - FEELING ABNORMAL [None]
  - MYALGIA [None]
